FAERS Safety Report 21957639 (Version 3)
Quarter: 2023Q1

REPORT INFORMATION
  Report Type: Spontaneous
  Country: US (occurrence: US)
  Receive Date: 20230206
  Receipt Date: 20230317
  Transmission Date: 20230418
  Serious: Yes (Other)
  Sender: FDA-Public Use
  Company Number: US-PFIZER INC-202300050049

PATIENT
  Age: 67 Year
  Sex: Female

DRUGS (31)
  1. BOSULIF [Suspect]
     Active Substance: BOSUTINIB MONOHYDRATE
     Indication: Acute myeloid leukaemia
     Dosage: 300 MG, 1X/DAY
     Route: 048
     Dates: start: 202211, end: 20230201
  2. AZITHROMYCIN [Suspect]
     Active Substance: AZITHROMYCIN
     Dosage: UNK
  3. LISINOPRIL [Suspect]
     Active Substance: LISINOPRIL
     Dosage: UNK
  4. LOVENOX [Suspect]
     Active Substance: ENOXAPARIN SODIUM
     Dosage: UNK
  5. POSACONAZOLE [Concomitant]
     Active Substance: POSACONAZOLE
     Dosage: UNK
  6. .ALPHA.-TOCOPHEROL ACETATE [Concomitant]
     Active Substance: .ALPHA.-TOCOPHEROL ACETATE
     Dosage: UNK
  7. BIOTIN [Concomitant]
     Active Substance: BIOTIN
     Dosage: UNK
  8. CALCIUM ASCORBATE [Concomitant]
     Active Substance: CALCIUM ASCORBATE
     Dosage: UNK
  9. CALCIUM STEARATE [Concomitant]
     Active Substance: CALCIUM STEARATE
     Dosage: UNK
  10. CALCIUM PANTOTHENATE [Concomitant]
     Active Substance: CALCIUM PANTOTHENATE
     Dosage: UNK
  11. CHOLECALCIFEROL [Concomitant]
     Active Substance: CHOLECALCIFEROL
     Dosage: UNK
  12. CUPRIC SULFATE ANHYDROUS [Concomitant]
     Active Substance: CUPRIC SULFATE ANHYDROUS
     Dosage: UNK
  13. CROSPOVIDONE [Concomitant]
     Active Substance: CROSPOVIDONE
     Dosage: UNK
  14. CYANOCOBALAMIN [Concomitant]
     Active Substance: CYANOCOBALAMIN
     Dosage: UNK
  15. FERROUS SULFATE [Concomitant]
     Active Substance: FERROUS SULFATE
     Dosage: UNK
  16. FOLIC ACID [Concomitant]
     Active Substance: FOLIC ACID
     Dosage: UNK
  17. LACTOSE [Concomitant]
     Active Substance: LACTOSE
     Dosage: UNK
  18. MANGANESE SULFATE [Concomitant]
     Active Substance: MANGANESE SULFATE
     Dosage: UNK
  19. MAGNESIUM OXIDE [Concomitant]
     Active Substance: MAGNESIUM OXIDE
     Dosage: UNK
  20. CELLULOSE, MICROCRYSTALLINE [Concomitant]
     Active Substance: CELLULOSE, MICROCRYSTALLINE
     Dosage: UNK
  21. NICOTINAMIDE [Concomitant]
     Active Substance: NIACINAMIDE
     Dosage: UNK
  22. PANAX GINSENG EXTRACT [Concomitant]
     Dosage: UNK
  23. PYRIDOXINE HYDROCHLORIDE [Concomitant]
     Active Substance: PYRIDOXINE HYDROCHLORIDE
     Dosage: UNK
  24. RIBOFLAVIN [Concomitant]
     Active Substance: RIBOFLAVIN
     Dosage: UNK
  25. SILICON DIOXIDE [Concomitant]
     Active Substance: SILICON DIOXIDE
     Dosage: UNK
  26. SODIUM SELENITE [Concomitant]
     Active Substance: SODIUM SELENITE
     Dosage: UNK
  27. THIAMINE MONONITRATE [Concomitant]
     Active Substance: THIAMINE MONONITRATE
     Dosage: UNK
  28. ZINC SULFATE [Concomitant]
     Active Substance: ZINC SULFATE
     Dosage: UNK
  29. VITAMIN A PALMITATE [Concomitant]
     Active Substance: VITAMIN A PALMITATE
     Dosage: UNK
  30. ZOFRAN [Concomitant]
     Active Substance: ONDANSETRON HYDROCHLORIDE
     Dosage: UNK
  31. LEVOFLOXACIN [Concomitant]
     Active Substance: LEVOFLOXACIN
     Dosage: UNK

REACTIONS (2)
  - Abdominal wall haematoma [Not Recovered/Not Resolved]
  - Nausea [Not Recovered/Not Resolved]
